FAERS Safety Report 7316312-8 (Version None)
Quarter: 2011Q1

REPORT INFORMATION
  Report Type: 
  Country: None (occurrence: None)
  Receive Date: 20110225
  Receipt Date: 20110216
  Transmission Date: 20110831
  Serious: Yes (Hospitalization)
  Sender: FDA-Public Use
  Company Number: US-ASTRAZENECA-2011SE09029

PATIENT
  Age: 22130 Day
  Sex: Male
  Weight: 97.1 kg

DRUGS (3)
  1. AMLODIPINE [Concomitant]
  2. SEROQUEL [Suspect]
     Indication: SLEEP DISORDER
     Route: 048
     Dates: start: 20060101, end: 20110201
  3. METFORMIN HCL [Concomitant]

REACTIONS (3)
  - MYOCARDIAL INFARCTION [None]
  - DRUG DOSE OMISSION [None]
  - STRESS [None]
